FAERS Safety Report 14981229 (Version 1)
Quarter: 2018Q2

REPORT INFORMATION
  Report Type: Spontaneous
  Country: US (occurrence: US)
  Receive Date: 20180606
  Receipt Date: 20180606
  Transmission Date: 20180711
  Serious: No
  Sender: FDA-Public Use
  Company Number: US-NEUROCRINE BIOSCIENCES INC.-2018NBI01645

PATIENT
  Age: 83 Year
  Sex: Female

DRUGS (13)
  1. MELATONIN [Concomitant]
     Active Substance: MELATONIN
     Dosage: AT NIGHT
  2. TRAZODONE [Concomitant]
     Active Substance: TRAZODONE HYDROCHLORIDE
     Dosage: AT NIGHT
  3. PRESERVISION AREDS [Concomitant]
     Active Substance: MINERALS\VITAMINS
  4. GALANTAMINE. [Concomitant]
     Active Substance: GALANTAMINE
  5. RISPERIDONE. [Concomitant]
     Active Substance: RISPERIDONE
  6. VITAMIN B12 [Concomitant]
     Active Substance: CYANOCOBALAMIN
  7. INGREZZA [Suspect]
     Active Substance: VALBENAZINE
     Indication: TARDIVE DYSKINESIA
     Route: 048
     Dates: start: 201805, end: 201805
  8. VITAMIN D [Concomitant]
     Active Substance: CHOLECALCIFEROL
  9. EYLEA EYE DROP [Concomitant]
     Dosage: 2 MG; 0.05 ML
  10. TYLENOL [Concomitant]
     Active Substance: ACETAMINOPHEN
     Dosage: AS NEEDED
  11. INGREZZA [Suspect]
     Active Substance: VALBENAZINE
     Dosage: IN THE EVENING
     Route: 048
     Dates: start: 201805
  12. MELOXICAM. [Concomitant]
     Active Substance: MELOXICAM
     Dosage: AS NEEDED
  13. TOPROL XL [Concomitant]
     Active Substance: METOPROLOL SUCCINATE

REACTIONS (5)
  - Confusional state [Not Recovered/Not Resolved]
  - Aphasia [Not Recovered/Not Resolved]
  - Dysphagia [Not Recovered/Not Resolved]
  - Drooling [Not Recovered/Not Resolved]
  - Restlessness [Not Recovered/Not Resolved]

NARRATIVE: CASE EVENT DATE: 201805
